FAERS Safety Report 24988810 (Version 1)
Quarter: 2025Q1

REPORT INFORMATION
  Report Type: Spontaneous
  Country: ES (occurrence: ES)
  Receive Date: 20250220
  Receipt Date: 20250220
  Transmission Date: 20250409
  Serious: Yes (Hospitalization, Other)
  Sender: AUROBINDO
  Company Number: ES-AEMPS-1628709

PATIENT
  Age: 58 Year
  Sex: Female

DRUGS (2)
  1. ERTAPENEM [Interacting]
     Active Substance: ERTAPENEM
     Indication: Urinary tract infection
     Route: 042
     Dates: start: 20241218, end: 20241224
  2. MEROPENEM [Interacting]
     Active Substance: MEROPENEM
     Indication: Urinary tract infection
     Dosage: 1 GRAM, 3 TIMES A DAY
     Route: 042
     Dates: start: 20241224, end: 20241227

REACTIONS (1)
  - Status epilepticus [Recovering/Resolving]

NARRATIVE: CASE EVENT DATE: 20241226
